FAERS Safety Report 8433871-2 (Version None)
Quarter: 2012Q2

REPORT INFORMATION
  Report Type: 
  Country: None (occurrence: None)
  Receive Date: 20120613
  Receipt Date: 20120607
  Transmission Date: 20120825
  Serious: Yes (Other)
  Sender: FDA-Public Use
  Company Number: US-PFIZER INC-2012137756

PATIENT
  Sex: Female
  Weight: 106.12 kg

DRUGS (3)
  1. EFFEXOR XR [Suspect]
     Indication: DEPRESSION
     Dosage: 450 MG (SIX 75MG), 1X/DAY
     Route: 048
  2. KLONOPIN [Concomitant]
     Dosage: 2 MG, 4X/DAY
  3. EFFEXOR XR [Suspect]
     Indication: ANXIETY
     Dosage: 225 MG (THREE 75MG), 1X/DAY
     Route: 048
     Dates: end: 20120503

REACTIONS (8)
  - OEDEMA [None]
  - ARTHRALGIA [None]
  - JOINT SWELLING [None]
  - DEPRESSION [None]
  - ANXIETY [None]
  - DRY MOUTH [None]
  - INCORRECT DOSE ADMINISTERED [None]
  - CONFUSIONAL STATE [None]
